FAERS Safety Report 6918620-9 (Version None)
Quarter: 2010Q3

REPORT INFORMATION
  Report Type: 
  Country: None (occurrence: None)
  Receive Date: 20100811
  Receipt Date: 20100803
  Transmission Date: 20110219
  Serious: Yes (Hospitalization, Disabling, Other)
  Sender: FDA-Public Use
  Company Number: US-PFIZER INC-2010042241

PATIENT
  Sex: Male

DRUGS (2)
  1. CHANTIX [Suspect]
     Indication: SMOKING CESSATION THERAPY
     Dosage: UNK
     Dates: start: 20070322, end: 20070417
  2. HYDROCODONE [Concomitant]
     Indication: BACK PAIN
     Dosage: UNK
     Dates: start: 20020101, end: 20090101

REACTIONS (5)
  - COMPLEX PARTIAL SEIZURES [None]
  - DIZZINESS [None]
  - MOTOR DYSFUNCTION [None]
  - NAUSEA [None]
  - VISION BLURRED [None]
